FAERS Safety Report 4270922-3 (Version None)
Quarter: 2004Q1

REPORT INFORMATION
  Report Type: 
  Country: None (occurrence: None)
  Receive Date: 20040113
  Receipt Date: 20031230
  Transmission Date: 20041129
  Serious: Yes (Hospitalization)
  Sender: FDA-Public Use
  Company Number: GBR-2003-0000851

PATIENT
  Age: 53 Year
  Sex: Female

DRUGS (3)
  1. OXYCONTIN [Suspect]
     Indication: PAIN
     Dosage: 40 MG, DAILY, ORAL
     Route: 048
     Dates: start: 20030901, end: 20031001
  2. ANTIHISTIMINIC  DRUG [Suspect]
     Indication: PRURITUS
     Dates: start: 20030901
  3. MORPHINE [Concomitant]

REACTIONS (2)
  - DELIRIUM [None]
  - PSYCHIATRIC SYMPTOM [None]
